FAERS Safety Report 25650949 (Version 4)
Quarter: 2025Q4

REPORT INFORMATION
  Report Type: Spontaneous
  Country: US (occurrence: US)
  Receive Date: 20250806
  Receipt Date: 20251001
  Transmission Date: 20260117
  Serious: Yes (Hospitalization)
  Sender: ELI LILLY AND COMPANY
  Company Number: US-ELI_LILLY_AND_COMPANY-US202507029954

PATIENT
  Age: 61 Year
  Sex: Female
  Weight: 68.934 kg

DRUGS (6)
  1. OMVOH [Suspect]
     Active Substance: MIRIKIZUMAB-MRKZ
     Indication: Crohn^s disease
     Dosage: 900 MG, MONTHLY (1/M)
     Route: 042
     Dates: start: 20250506
  2. OMVOH [Suspect]
     Active Substance: MIRIKIZUMAB-MRKZ
     Dosage: 900 MG, MONTHLY (1/M)
     Route: 042
  3. OMVOH [Suspect]
     Active Substance: MIRIKIZUMAB-MRKZ
     Dosage: 900 MG, MONTHLY (1/M)
     Route: 042
     Dates: end: 20250715
  4. ERGOCALCIFEROL [Concomitant]
     Active Substance: ERGOCALCIFEROL
     Indication: Product used for unknown indication
  5. COLESTID [Concomitant]
     Active Substance: COLESTIPOL HYDROCHLORIDE
     Indication: Product used for unknown indication
  6. CLONAZEPAM [Concomitant]
     Active Substance: CLONAZEPAM
     Indication: Product used for unknown indication

REACTIONS (11)
  - Nephrolithiasis [Recovering/Resolving]
  - Hypotension [Recovering/Resolving]
  - Sepsis [Unknown]
  - Pyelonephritis [Unknown]
  - Illness [Recovering/Resolving]
  - Fatigue [Unknown]
  - Vomiting [Unknown]
  - Diarrhoea [Unknown]
  - Head injury [Unknown]
  - Memory impairment [Unknown]
  - Blood thyroid stimulating hormone increased [Unknown]

NARRATIVE: CASE EVENT DATE: 20250720
